FAERS Safety Report 14497240 (Version 2)
Quarter: 2020Q4

REPORT INFORMATION
  Report Type: Spontaneous
  Country: ES (occurrence: ES)
  Receive Date: 20180207
  Receipt Date: 20201121
  Transmission Date: 20210113
  Serious: Yes (Other)
  Sender: FDA-Public Use
  Company Number: ES-AUROBINDO-AUR-APL-2018-005207

PATIENT
  Age: 71 Year
  Sex: Female
  Weight: 85 kg

DRUGS (4)
  1. PAROXETINE. [Suspect]
     Active Substance: PAROXETINE
     Indication: PRODUCT USED FOR UNKNOWN INDICATION
     Dosage: UNK
     Route: 065
     Dates: start: 201709, end: 20171130
  2. SAFINAMIDE [Suspect]
     Active Substance: SAFINAMIDE
     Indication: PRODUCT USED FOR UNKNOWN INDICATION
     Dosage: ()
     Route: 065
     Dates: start: 201709, end: 201711
  3. DUODOPA [Suspect]
     Active Substance: CARBIDOPA\LEVODOPA
     Indication: PARKINSON^S DISEASE
     Dosage: MORNING DOSE: 10.2?CONTINUOUS DOSE: 4.5?EXTRA DOSE: 3.5 ML ()
     Route: 050
     Dates: start: 20110920, end: 20171130
  4. DUODOPA [Suspect]
     Active Substance: CARBIDOPA\LEVODOPA
     Dosage: MORNING DOSE: 9.5?CONTINUOUS DOSE: 4?EXTRA DOSE: 2.5 ML ()
     Route: 050
     Dates: start: 20171130

REACTIONS (7)
  - Decreased appetite [Recovered/Resolved]
  - Hallucination [Recovered/Resolved]
  - Parkinson^s disease [Recovered/Resolved with Sequelae]
  - Aggression [Not Recovered/Not Resolved]
  - Gait inability [Not Recovered/Not Resolved]
  - Vitamin B12 deficiency [Recovered/Resolved]
  - Cognitive disorder [Not Recovered/Not Resolved]

NARRATIVE: CASE EVENT DATE: 2017
